FAERS Safety Report 7506911-2 (Version None)
Quarter: 2011Q2

REPORT INFORMATION
  Report Type: 
  Country: None (occurrence: None)
  Receive Date: 20110526
  Receipt Date: 20110520
  Transmission Date: 20111010
  Serious: Yes (Other)
  Sender: FDA-Public Use
  Company Number: JP-PFIZER INC-2011048580

PATIENT
  Age: 64 Year
  Sex: Male

DRUGS (3)
  1. ZOVIRAX [Suspect]
     Indication: KERATITIS HERPETIC
     Dosage: 5X/DAY
     Route: 047
     Dates: start: 20110225, end: 20110301
  2. XALATAN [Suspect]
     Indication: OCULAR HYPERTENSION
     Dosage: ONCE DAILY IN BOTH EYES
     Route: 047
     Dates: start: 20091201, end: 20110223
  3. ZOVIRAX [Suspect]
     Dosage: 3X/DAY
     Route: 047
     Dates: start: 20110301, end: 20110307

REACTIONS (2)
  - KERATITIS HERPETIC [None]
  - CORNEAL DISORDER [None]
